FAERS Safety Report 5492804-1 (Version None)
Quarter: 2007Q4

REPORT INFORMATION
  Report Type: 
  Country: None (occurrence: None)
  Receive Date: 20071023
  Receipt Date: 20071017
  Transmission Date: 20080405
  Serious: Yes (Death)
  Sender: FDA-Public Use
  Company Number: US-ELI_LILLY_AND_COMPANY-US200710004408

PATIENT
  Sex: Male

DRUGS (4)
  1. SYMBYAX [Suspect]
  2. OXYCONTIN [Concomitant]
  3. XANAX [Concomitant]
  4. ALCOHOL [Concomitant]

REACTIONS (2)
  - COMPLETED SUICIDE [None]
  - INTENTIONAL OVERDOSE [None]
